FAERS Safety Report 5019222-4 (Version None)
Quarter: 2006Q2

REPORT INFORMATION
  Report Type: 
  Country: None (occurrence: None)
  Receive Date: 20060606
  Receipt Date: 20060510
  Transmission Date: 20061013
  Serious: Yes (Hospitalization)
  Sender: FDA-Public Use
  Company Number: DK-SANOFI-SYNTHELABO-F01200601204

PATIENT
  Age: 53 Year
  Sex: Male

DRUGS (16)
  1. EMPERAL [Concomitant]
     Indication: NAUSEA
     Dates: start: 20060502, end: 20060504
  2. PREDNISOLONE [Concomitant]
     Dates: start: 20060502, end: 20060504
  3. ZOFRAN [Concomitant]
     Indication: NAUSEA
     Dates: start: 20060502, end: 20060504
  4. EMENT [Concomitant]
     Indication: NAUSEA
     Dates: start: 20060502, end: 20060502
  5. DIFLUCAN [Concomitant]
     Indication: FUNGAL INFECTION
     Dates: start: 20060502, end: 20060511
  6. CODEINE [Concomitant]
     Dates: start: 20060427
  7. CIPROXIN [Concomitant]
     Indication: INFECTION
     Dates: start: 20060427, end: 20060503
  8. METRONIDAZOLE [Concomitant]
     Indication: INFECTION
     Dates: start: 20060427, end: 20060503
  9. NATRIUMFLUORID [Concomitant]
     Dates: start: 20060427, end: 20060510
  10. ACETAMINOPHEN [Concomitant]
     Indication: ABDOMINAL PAIN
  11. HEXALIN [Concomitant]
  12. MANDOLGIN [Concomitant]
     Indication: ABDOMINAL PAIN
  13. SPIRON [Concomitant]
  14. CAPECITABINE [Suspect]
     Indication: BILE DUCT CANCER
     Route: 048
     Dates: start: 20060502, end: 20060509
  15. GEMCITABINE [Suspect]
     Indication: BILE DUCT CANCER
     Route: 042
     Dates: start: 20060502, end: 20060502
  16. ELOXATIN [Suspect]
     Indication: BILE DUCT CANCER
     Route: 042
     Dates: start: 20060502, end: 20060502

REACTIONS (7)
  - ACUTE MYOCARDIAL INFARCTION [None]
  - DIZZINESS [None]
  - DYSPNOEA [None]
  - FATIGUE [None]
  - HEADACHE [None]
  - MALAISE [None]
  - SENSE OF OPPRESSION [None]
